FAERS Safety Report 9316268 (Version 1)
Quarter: 2013Q2

REPORT INFORMATION
  Report Type: Spontaneous
  Country: GB (occurrence: GB)
  Receive Date: 20130530
  Receipt Date: 20130530
  Transmission Date: 20140414
  Serious: Yes (Other)
  Sender: FDA-Public Use
  Company Number: GB-RANBAXY-2013R1-69340

PATIENT
  Age: 26 Year
  Sex: 0

DRUGS (2)
  1. SERTRALINE [Suspect]
     Indication: ANXIETY
     Dosage: UNK
     Route: 048
     Dates: start: 20130417, end: 20130429
  2. SERTRALINE [Suspect]
     Indication: DEPRESSION

REACTIONS (3)
  - Bruxism [Recovered/Resolved]
  - Pain in jaw [Recovered/Resolved]
  - Joint stiffness [Recovered/Resolved]
